FAERS Safety Report 9651989 (Version 1)
Quarter: 2013Q4

REPORT INFORMATION
  Report Type: Spontaneous
  Country: US (occurrence: US)
  Receive Date: 20131029
  Receipt Date: 20131029
  Transmission Date: 20140711
  Serious: No
  Sender: FDA-Public Use
  Company Number: US-PFIZER INC-2013307526

PATIENT
  Age: 73 Year
  Sex: Male
  Weight: 68.9 kg

DRUGS (2)
  1. ATORVASTATIN CALCIUM [Suspect]
     Indication: BLOOD CHOLESTEROL INCREASED
     Dosage: UNK, 2X/DAY
     Route: 048
     Dates: start: 2012, end: 2012
  2. LISINOPRIL [Concomitant]
     Dosage: UNK

REACTIONS (1)
  - Nausea [Unknown]
